FAERS Safety Report 9422625 (Version 1)
Quarter: 2013Q3

REPORT INFORMATION
  Report Type: Spontaneous
  Country: US (occurrence: US)
  Receive Date: 20130726
  Receipt Date: 20130726
  Transmission Date: 20140515
  Serious: No
  Sender: FDA-Public Use
  Company Number: US-PFIZER INC-2013214768

PATIENT
  Age: 70 Year
  Sex: Male

DRUGS (1)
  1. TYGACIL [Suspect]
     Indication: LOWER RESPIRATORY TRACT INFECTION
     Dosage: UNK

REACTIONS (1)
  - Orthostatic hypotension [Unknown]
